FAERS Safety Report 12936978 (Version 1)
Quarter: 2016Q4

REPORT INFORMATION
  Report Type: Spontaneous
  Country: US (occurrence: US)
  Receive Date: 20161114
  Receipt Date: 20161114
  Transmission Date: 20170207
  Serious: No
  Sender: FDA-Public Use
  Company Number: US-009507513-1611USA001314

PATIENT
  Sex: Female

DRUGS (3)
  1. LISINOPRIL. [Suspect]
     Active Substance: LISINOPRIL
     Route: 048
  2. METFORMIN [Suspect]
     Active Substance: METFORMIN HYDROCHLORIDE
  3. ZETIA [Suspect]
     Active Substance: EZETIMIBE
     Dosage: 1 BY MOUTH EVERY DAY
     Route: 048
     Dates: start: 20160830

REACTIONS (1)
  - Drug hypersensitivity [Unknown]
